FAERS Safety Report 8853123 (Version 1)
Quarter: 2012Q4

REPORT INFORMATION
  Report Type: Report from Study
  Country: GB (occurrence: GB)
  Receive Date: 20121022
  Receipt Date: 20121022
  Transmission Date: 20130627
  Serious: Yes (Death)
  Sender: FDA-Public Use
  Company Number: GB-ABBOTT-12P-167-0997257-00

PATIENT
  Sex: Male
  Weight: 74 kg

DRUGS (1)
  1. HUMIRA [Suspect]
     Indication: RHEUMATOID ARTHRITIS
     Route: 058
     Dates: start: 20040401

REACTIONS (3)
  - Cerebrovascular accident [Fatal]
  - Bronchopneumonia [Fatal]
  - Huntington^s disease [Fatal]
